FAERS Safety Report 9168275 (Version 1)
Quarter: 2013Q1

REPORT INFORMATION
  Report Type: Spontaneous
  Country: MX (occurrence: MX)
  Receive Date: 20130318
  Receipt Date: 20130318
  Transmission Date: 20140127
  Serious: Yes (Other)
  Sender: FDA-Public Use
  Company Number: PHHY2013MX025785

PATIENT
  Age: 47 Year
  Sex: Female

DRUGS (6)
  1. TRILEPTAL [Suspect]
     Dosage: 600 MG, DAILY
     Route: 048
     Dates: start: 200901
  2. SEROQUEL [Concomitant]
     Dosage: 1 DF, EVERY 3RD DAY
  3. RIVOTRIL [Concomitant]
     Dosage: 5 DRP, UNK
  4. KEPPRA [Concomitant]
     Dosage: UNK UKN, UNK
  5. CONTUMAX [Concomitant]
     Dosage: UNK UKN, UNK
  6. CEVALIN [Concomitant]
     Dosage: UNK UKN, UNK

REACTIONS (2)
  - Loss of consciousness [Not Recovered/Not Resolved]
  - Malaise [Not Recovered/Not Resolved]
